FAERS Safety Report 5922942-8 (Version None)
Quarter: 2008Q4

REPORT INFORMATION
  Report Type: 
  Country: None (occurrence: None)
  Receive Date: 20081017
  Receipt Date: 20081010
  Transmission Date: 20090506
  Serious: Yes (Death)
  Sender: FDA-Public Use
  Company Number: US-BAXTER-2008BH010321

PATIENT
  Age: 6 Year
  Sex: Female

DRUGS (1)
  1. HEPARIN SODIUM INJECTION [Suspect]
     Indication: INDWELLING CATHETER MANAGEMENT
     Dosage: DOSE UNIT:UNKNOWN
     Route: 042
     Dates: start: 20080301

REACTIONS (6)
  - DEATH [None]
  - HEADACHE [None]
  - HYPOTENSION [None]
  - LETHARGY [None]
  - NAUSEA [None]
  - VOMITING [None]
